FAERS Safety Report 10037117 (Version 1)
Quarter: 2014Q1

REPORT INFORMATION
  Report Type: Spontaneous
  Country: US (occurrence: None)
  Receive Date: 20140325
  Receipt Date: 20140325
  Transmission Date: 20141002
  Serious: Yes (Disabling)
  Sender: FDA-Public Use
  Company Number: None

PATIENT
  Age: 26 Year
  Sex: Female
  Weight: 58.06 kg

DRUGS (17)
  1. FLUOXETINE 20 MG TABLETS [Suspect]
     Indication: CONVULSION
     Route: 048
     Dates: start: 19980208, end: 19980208
  2. FLUOXETINE 20 MG TABLETS [Suspect]
     Indication: ANXIETY
     Route: 048
     Dates: start: 19980208, end: 19980208
  3. FLUOXETINE 20 MG TABLETS [Suspect]
     Indication: DEPRESSION
     Route: 048
     Dates: start: 19980208, end: 19980208
  4. EPITOL [Concomitant]
  5. SIMVSTATIN [Concomitant]
  6. LORAZEPAM [Concomitant]
  7. LISINOPRIL [Concomitant]
  8. HYDROXYZINE HCL [Concomitant]
  9. DIPHENHYDRAMINE [Concomitant]
  10. FLUOXETINE [Concomitant]
  11. LUTEIN GREEN COFFEE BEAN [Concomitant]
  12. ASPIRIN [Concomitant]
  13. CALCIUM [Concomitant]
  14. VITAMIN D3 [Concomitant]
  15. CHROMIUN [Concomitant]
  16. POLYNTCOTINATE [Concomitant]
  17. FISH OIL [Concomitant]

REACTIONS (7)
  - Libido decreased [None]
  - Epistaxis [None]
  - Hot flush [None]
  - Rash [None]
  - Hyperhidrosis [None]
  - Pollakiuria [None]
  - Dry mouth [None]
